FAERS Safety Report 9414674 (Version 2)
Quarter: 2014Q3

REPORT INFORMATION
  Report Type: Spontaneous
  Country: US (occurrence: US)
  Receive Date: 20130723
  Receipt Date: 20140710
  Transmission Date: 20150326
  Serious: Yes (Other)
  Sender: FDA-Public Use
  Company Number: US-BAYER-2013-088752

PATIENT
  Age: 33 Year
  Sex: Female

DRUGS (8)
  1. PROTONIX [Concomitant]
     Active Substance: PANTOPRAZOLE SODIUM
     Dosage: 40 MG, 1 TABLET DAILY
     Dates: start: 20121018
  2. WELLBUTRIN [Concomitant]
     Active Substance: BUPROPION HYDROCHLORIDE
     Dosage: 150 MG, UNK
     Dates: start: 20121018
  3. BACTRIM DS [Concomitant]
     Active Substance: SULFAMETHOXAZOLE\TRIMETHOPRIM
     Dosage: 800 MG - 160 MG 1 TABLET TWICE A DAY
     Dates: start: 20121018
  4. PRENATAL VITAMINS [VIT C,VIT H,MIN NOS,VIT PP,RETINOL,VIT E,VIT B [Concomitant]
     Dosage: 1 TABLET DAILY
     Dates: start: 20121018
  5. TYLENOL EXTRA STRENGTH [Concomitant]
     Active Substance: ACETAMINOPHEN
     Indication: PAIN
     Dosage: 500 MG, 2 TABLETS AS NEEDED
     Route: 048
     Dates: start: 20121018
  6. IBUPROFEN. [Concomitant]
     Active Substance: IBUPROFEN
     Dosage: 600 MG, TABLET TWICE A DAY AS NEEDED
     Dates: start: 20121018
  7. MIRENA [Suspect]
     Active Substance: LEVONORGESTREL
     Dosage: 20 MCG/24HR, CONT
     Route: 015
     Dates: start: 20120301, end: 20121018
  8. AFRIN [PSEUDOEPHEDRINE SULFATE] [Concomitant]
     Dosage: 0.05 %, 1 SPRAY TWICE A DAY AS NEEDED
     Dates: start: 20121018

REACTIONS (2)
  - Device dislocation [None]
  - Injury [None]
